FAERS Safety Report 5786550-4 (Version None)
Quarter: 2008Q2

REPORT INFORMATION
  Report Type: 
  Country: None (occurrence: None)
  Receive Date: 20080624
  Receipt Date: 20080618
  Transmission Date: 20081010
  Serious: Yes (Hospitalization, Other)
  Sender: FDA-Public Use
  Company Number: JP-BOEHRINGER INGELHEIM GMBH, GERMANY-2008-BP-09062NB

PATIENT
  Sex: Male
  Weight: 66 kg

DRUGS (4)
  1. MICARDIS [Suspect]
     Indication: HYPERTENSION
     Route: 048
     Dates: start: 20060522
  2. OMEPRAL [Concomitant]
     Route: 048
     Dates: start: 20061021, end: 20070209
  3. CALBLOCK [Concomitant]
     Indication: HYPERTENSION
     Route: 048
     Dates: start: 20061216
  4. ACTOS [Concomitant]
     Route: 048
     Dates: start: 20050522

REACTIONS (2)
  - GASTROINTESTINAL CARCINOMA [None]
  - HYPERLIPIDAEMIA [None]
